FAERS Safety Report 17024548 (Version 1)
Quarter: 2019Q4

REPORT INFORMATION
  Report Type: Spontaneous
  Country: GB (occurrence: GB)
  Receive Date: 20191113
  Receipt Date: 20191113
  Transmission Date: 20200122
  Serious: Yes (Other)
  Sender: FDA-Public Use
  Company Number: GB-TEVA-2019-GB-1136292

PATIENT
  Age: 50 Year
  Sex: Female
  Weight: 66.22 kg

DRUGS (4)
  1. DOVOBET [Concomitant]
     Active Substance: BETAMETHASONE\CALCIPOTRIENE
     Indication: PSORIASIS
  2. CERELLE [Concomitant]
     Active Substance: DESOGESTREL
  3. ENSTILAR [Concomitant]
     Active Substance: BETAMETHASONE DIPROPIONATE\CALCIPOTRIENE HYDRATE
     Indication: PSORIASIS
  4. TERBINAFINE. [Suspect]
     Active Substance: TERBINAFINE
     Indication: ONYCHOMYCOSIS
     Dosage: 250 MG
     Route: 048
     Dates: start: 20190927, end: 20191010

REACTIONS (8)
  - Psoriasis [Unknown]
  - Pruritus [Unknown]
  - Fatigue [Recovered/Resolved]
  - Erythema [Unknown]
  - Insomnia [Unknown]
  - Dermatitis allergic [Recovering/Resolving]
  - Rash papular [Unknown]
  - Nausea [Recovered/Resolved]

NARRATIVE: CASE EVENT DATE: 20190927
